FAERS Safety Report 14498207 (Version 3)
Quarter: 2018Q1

REPORT INFORMATION
  Report Type: Spontaneous
  Country: US (occurrence: US)
  Receive Date: 20180207
  Receipt Date: 20180323
  Transmission Date: 20180509
  Serious: Yes (Hospitalization)
  Sender: FDA-Public Use
  Company Number: US-VERTEX PHARMACEUTICALS-2018-000772

PATIENT
  Age: 15 Year
  Sex: Female

DRUGS (22)
  1. ZYRTEC [Concomitant]
     Active Substance: CETIRIZINE HYDROCHLORIDE
  2. ZITHROMAX [Concomitant]
     Active Substance: AZITHROMYCIN DIHYDRATE
  3. PRILOSEC [Concomitant]
     Active Substance: OMEPRAZOLE MAGNESIUM
  4. VITAMIN D                          /00107901/ [Concomitant]
     Active Substance: ERGOCALCIFEROL
  5. PULMOZYME [Concomitant]
     Active Substance: DORNASE ALFA
  6. ALBUTEROL                          /00139501/ [Concomitant]
     Active Substance: ALBUTEROL
  7. IPRATROPIUM [Concomitant]
     Active Substance: IPRATROPIUM
     Route: 055
  8. FLUOXETINE [Concomitant]
     Active Substance: FLUOXETINE HYDROCHLORIDE
  9. ADVAIR HFA [Concomitant]
     Active Substance: FLUTICASONE PROPIONATE\SALMETEROL XINAFOATE
  10. MIRALAX [Concomitant]
     Active Substance: POLYETHYLENE GLYCOL 3350
  11. VITAMIN D3 [Concomitant]
     Active Substance: CHOLECALCIFEROL
  12. COMPLETE MULTI VIT [Concomitant]
  13. ENLYTE [Concomitant]
     Active Substance: CALCIUM ASCORBATE\CALCIUM THREONATE\COBALAMIN\COCARBOXYLASE\FERROUS GLUCONATE\FISH OIL\FLAVIN ADENINE DINUCLEOTIDE\FOLIC ACID\LEUCOVORIN CALCIUM\LEVOMEFOLIC ACID\METHYLCOBALAMIN\NADIDE\PYRIDOXAL 5-PHOSPHATE
  14. AMOXICILLIN. [Concomitant]
     Active Substance: AMOXICILLIN
  15. FLONASE                            /00908302/ [Concomitant]
     Active Substance: MOMETASONE FUROATE
  16. ZYRTEC [Concomitant]
     Active Substance: CETIRIZINE HYDROCHLORIDE
  17. ZYVOX [Concomitant]
     Active Substance: LINEZOLID
  18. ORKAMBI [Suspect]
     Active Substance: IVACAFTOR\LUMACAFTOR
     Indication: CYSTIC FIBROSIS
     Dosage: 400/250 MG, BID
     Route: 048
     Dates: start: 20150818
  19. CREON [Concomitant]
     Active Substance: PANCRELIPASE AMYLASE\PANCRELIPASE LIPASE\PANCRELIPASE PROTEASE
  20. FLUTICASONE. [Concomitant]
     Active Substance: FLUTICASONE
  21. ATROVENT [Concomitant]
     Active Substance: IPRATROPIUM BROMIDE
     Route: 055
  22. TOBI [Concomitant]
     Active Substance: TOBRAMYCIN

REACTIONS (1)
  - Infective pulmonary exacerbation of cystic fibrosis [Recovered/Resolved]

NARRATIVE: CASE EVENT DATE: 20171231
